FAERS Safety Report 4324763-9 (Version None)
Quarter: 2004Q1

REPORT INFORMATION
  Report Type: 
  Country: None (occurrence: None)
  Receive Date: 20040322
  Receipt Date: 20040310
  Transmission Date: 20041129
  Serious: Yes (Death)
  Sender: FDA-Public Use
  Company Number: 2004AP01504

PATIENT
  Age: 25 Year
  Sex: Female

DRUGS (8)
  1. SEROQUEL [Suspect]
     Dosage: 500 MG PO
     Route: 048
     Dates: start: 20020430
  2. LINTON [Concomitant]
  3. TASMOLIN [Concomitant]
  4. LEVOTOMIN [Concomitant]
  5. PROPITAN [Concomitant]
  6. FLUNITRAZEPAM [Concomitant]
  7. BENZALIN [Concomitant]
  8. SENNOSIDE A [Concomitant]

REACTIONS (1)
  - SUDDEN DEATH [None]
